FAERS Safety Report 7212480-7 (Version None)
Quarter: 2011Q1

REPORT INFORMATION
  Report Type: 
  Country: None (occurrence: None)
  Receive Date: 20110106
  Receipt Date: 20101228
  Transmission Date: 20110831
  Serious: Yes (Hospitalization)
  Sender: FDA-Public Use
  Company Number: IT-JNJFOC-20101209079

PATIENT
  Age: 61 Year
  Sex: Female

DRUGS (2)
  1. SALAZOPYRIN EN [Concomitant]
     Route: 048
  2. REMICADE [Suspect]
     Indication: SPONDYLOARTHROPATHY
     Route: 042

REACTIONS (2)
  - PLEURAL EFFUSION [None]
  - PERICARDITIS [None]
